FAERS Safety Report 7673062-6 (Version None)
Quarter: 2011Q3

REPORT INFORMATION
  Report Type: 
  Country: None (occurrence: None)
  Receive Date: 20110809
  Receipt Date: 20110804
  Transmission Date: 20111222
  Serious: Yes (Hospitalization, Other)
  Sender: FDA-Public Use
  Company Number: TR-BRISTOL-MYERS SQUIBB COMPANY-15950017

PATIENT
  Age: 59 Year
  Sex: Male

DRUGS (4)
  1. METOPROLOL SUCCINATE [Concomitant]
     Indication: HYPERTENSION
     Dosage: BELOC-ZOK 50MG TB
     Route: 048
     Dates: start: 20000201
  2. RAMIPRIL [Concomitant]
     Indication: HYPERTENSION
     Dosage: 1DF=2,5MG
     Route: 048
     Dates: start: 20000201
  3. COUMADIN [Suspect]
     Indication: HEART VALVE REPLACEMENT
     Dosage: 1 DF: 5 MG ONCE DAILY AND NEXT DAY 1 X 3/2
     Route: 048
     Dates: start: 20000201
  4. COUMADIN [Suspect]
     Indication: AORTIC SURGERY
     Dosage: 1 DF: 5 MG ONCE DAILY AND NEXT DAY 1 X 3/2
     Route: 048
     Dates: start: 20000201

REACTIONS (4)
  - PAIN IN EXTREMITY [None]
  - MEDICATION ERROR [None]
  - HAEMORRHAGE [None]
  - CONTUSION [None]
